FAERS Safety Report 6772679-0 (Version None)
Quarter: 2010Q2

REPORT INFORMATION
  Report Type: 
  Country: None (occurrence: None)
  Receive Date: 20100616
  Receipt Date: 20091005
  Transmission Date: 20101027
  Serious: No
  Sender: FDA-Public Use
  Company Number: US-ASTRAZENECA-2009SE11901

PATIENT
  Age: 78 Year
  Sex: Female
  Weight: 57.2 kg

DRUGS (3)
  1. PULMICORT RESPULES [Suspect]
     Route: 055
     Dates: start: 20090101
  2. SPIRIVA [Concomitant]
  3. PERFORMIST [Concomitant]

REACTIONS (7)
  - ASTHENIA [None]
  - CANDIDIASIS [None]
  - DRY MOUTH [None]
  - DYSPNOEA [None]
  - GASTROINTESTINAL DISORDER [None]
  - HEADACHE [None]
  - MUSCLE SPASMS [None]
